FAERS Safety Report 4654041-X (Version None)
Quarter: 2005Q2

REPORT INFORMATION
  Report Type: 
  Country: None (occurrence: None)
  Receive Date: 20050404
  Receipt Date: 20050119
  Transmission Date: 20051028
  Serious: Yes (Death)
  Sender: FDA-Public Use
  Company Number: USA050188164

PATIENT
  Age: 30 Year
  Sex: Male

DRUGS (3)
  1. CYMBALTA [Suspect]
     Indication: MAJOR DEPRESSION
     Dosage: 60 MG DAY
     Dates: start: 20041020, end: 20041213
  2. LEXAPRO [Concomitant]
  3. ATIVAN [Concomitant]

REACTIONS (1)
  - COMPLETED SUICIDE [None]
